FAERS Safety Report 12632840 (Version 2)
Quarter: 2016Q3

REPORT INFORMATION
  Report Type: Spontaneous
  Country: US (occurrence: US)
  Receive Date: 20160808
  Receipt Date: 20160808
  Transmission Date: 20161109
  Serious: No
  Sender: FDA-Public Use
  Company Number: US-BEH-2015057197

PATIENT
  Sex: Female
  Weight: 84 kg

DRUGS (22)
  1. HIZENTRA [Suspect]
     Active Substance: HUMAN IMMUNOGLOBULIN G
     Indication: POLYNEUROPATHY
     Route: 058
  2. COUMADIN [Concomitant]
     Active Substance: WARFARIN SODIUM
  3. CITRACAL + D [Concomitant]
     Active Substance: CALCIUM CITRATE\VITAMIN D
  4. LIDOCAINE/PRILOCAINE [Concomitant]
     Active Substance: LIDOCAINE\PRILOCAINE
  5. EPIPEN [Concomitant]
     Active Substance: EPINEPHRINE
  6. NEURONTIN [Concomitant]
     Active Substance: GABAPENTIN
  7. ADDERALL [Concomitant]
     Active Substance: AMPHETAMINE ASPARTATE\AMPHETAMINE SULFATE\DEXTROAMPHETAMINE SACCHARATE\DEXTROAMPHETAMINE SULFATE
  8. ACETAMINOPHEN. [Concomitant]
     Active Substance: ACETAMINOPHEN
  9. SIMVASTATIN. [Concomitant]
     Active Substance: SIMVASTATIN
  10. CYANOCOBALAMIN. [Concomitant]
     Active Substance: CYANOCOBALAMIN
  11. NEUPOGEN [Concomitant]
     Active Substance: FILGRASTIM
  12. METHOTREXATE. [Concomitant]
     Active Substance: METHOTREXATE
  13. LIDOCAINE. [Concomitant]
     Active Substance: LIDOCAINE
  14. PROVENTIL [Concomitant]
     Active Substance: ALBUTEROL
  15. PRILOSEC [Concomitant]
     Active Substance: OMEPRAZOLE MAGNESIUM
  16. VITAMIN D [Concomitant]
     Active Substance: CHOLECALCIFEROL
  17. TRAMADOL. [Concomitant]
     Active Substance: TRAMADOL
  18. SYNTHROID [Concomitant]
     Active Substance: LEVOTHYROXINE SODIUM
  19. DIOVAN HCT [Concomitant]
     Active Substance: HYDROCHLOROTHIAZIDE\VALSARTAN
  20. DIPHENHYDRAMINE. [Concomitant]
     Active Substance: DIPHENHYDRAMINE
  21. BIOTIN [Concomitant]
     Active Substance: BIOTIN
  22. COREG [Concomitant]
     Active Substance: CARVEDILOL

REACTIONS (4)
  - Chills [Unknown]
  - Infusion site erythema [Unknown]
  - Infusion site pain [Unknown]
  - Infusion site nodule [Unknown]
